FAERS Safety Report 24130700 (Version 1)
Quarter: 2024Q3

REPORT INFORMATION
  Report Type: Report from Study
  Country: BE (occurrence: None)
  Receive Date: 20240724
  Receipt Date: 20240724
  Transmission Date: 20241016
  Serious: Yes (Hospitalization, Other)
  Sender: ASTRAZENECA
  Company Number: 2021A043802

PATIENT
  Age: 26705 Day
  Sex: Male

DRUGS (3)
  1. IMFINZI [Suspect]
     Active Substance: DURVALUMAB
     Dosage: 10MG/KG BODY WEIGHT, ONCE EVERY TWO WEEKS
     Route: 042
  2. IMFINZI [Suspect]
     Active Substance: DURVALUMAB
     Dosage: SCHEDULED ON 28 JANUARY CANNOT TAKE PLACE
     Route: 042
  3. IMFINZI [Suspect]
     Active Substance: DURVALUMAB
     Dosage: SCHEDULED FOR 11 FEBRUARY
     Route: 042

REACTIONS (2)
  - Renal cyst [Recovering/Resolving]
  - Intentional dose omission [Unknown]

NARRATIVE: CASE EVENT DATE: 20210125
